FAERS Safety Report 5149856-8 (Version None)
Quarter: 2006Q4

REPORT INFORMATION
  Report Type: 
  Country: None (occurrence: None)
  Receive Date: 20061108
  Receipt Date: 20061030
  Transmission Date: 20070319
  Serious: Yes (Other)
  Sender: FDA-Public Use
  Company Number: 2006132228

PATIENT
  Age: 67 Year
  Sex: Female
  Weight: 70.3075 kg

DRUGS (2)
  1. LIPITOR [Suspect]
     Dosage: 40 MG (20 MG, 2 IN 1 D)
  2. OMEPRAZOLE [Concomitant]

REACTIONS (2)
  - ABASIA [None]
  - MYALGIA [None]
